FAERS Safety Report 17007957 (Version 1)
Quarter: 2019Q4

REPORT INFORMATION
  Report Type: Spontaneous
  Country: GB (occurrence: GB)
  Receive Date: 20191108
  Receipt Date: 20191108
  Transmission Date: 20200122
  Serious: Yes (Death, Life-Threatening)
  Sender: FDA-Public Use
  Company Number: GB-EMD SERONO-E2B_90072176

PATIENT
  Age: 14 Year
  Sex: Female
  Weight: 36 kg

DRUGS (1)
  1. SOMATROPIN. [Suspect]
     Active Substance: SOMATROPIN
     Indication: GROWTH HORMONE DEFICIENCY
     Route: 058
     Dates: start: 20180416

REACTIONS (2)
  - Glioma [Fatal]
  - Glioblastoma [Fatal]

NARRATIVE: CASE EVENT DATE: 20180416
